FAERS Safety Report 12236581 (Version 1)
Quarter: 2016Q2

REPORT INFORMATION
  Report Type: Spontaneous
  Country: US (occurrence: US)
  Receive Date: 20160405
  Receipt Date: 20160405
  Transmission Date: 20160815
  Serious: No
  Sender: FDA-Public Use
  Company Number: US-AMGEN-USASP2016039339

PATIENT
  Age: 28 Year
  Sex: Female

DRUGS (2)
  1. ENBREL [Suspect]
     Active Substance: ETANERCEPT
     Indication: ANKYLOSING SPONDYLITIS
     Dosage: UNK UNK, QWK
     Route: 065
     Dates: start: 2016
  2. PREDNISONE. [Concomitant]
     Active Substance: PREDNISONE
     Dosage: UNK
     Dates: start: 201603

REACTIONS (17)
  - Dysgeusia [Unknown]
  - Somnolence [Unknown]
  - Feeling abnormal [Unknown]
  - Contusion [Unknown]
  - Fatigue [Unknown]
  - Injection site erythema [Recovered/Resolved]
  - Disturbance in attention [Unknown]
  - Decreased appetite [Unknown]
  - Neck pain [Unknown]
  - Balance disorder [Unknown]
  - Injection site bruising [Recovered/Resolved]
  - Head discomfort [Unknown]
  - Fall [Unknown]
  - Back injury [Unknown]
  - Pain in extremity [Unknown]
  - Mobility decreased [Unknown]
  - Parosmia [Unknown]

NARRATIVE: CASE EVENT DATE: 2016
